FAERS Safety Report 8564907-6 (Version None)
Quarter: 2012Q3

REPORT INFORMATION
  Report Type: 
  Country: None (occurrence: None)
  Receive Date: 20120803
  Receipt Date: 20120724
  Transmission Date: 20120928
  Serious: Yes (Other)
  Sender: FDA-Public Use
  Company Number: BR-BRISTOL-MYERS SQUIBB COMPANY-16809014

PATIENT
  Age: 71 Year
  Sex: Female

DRUGS (3)
  1. IRBESARTAN AND HYDROCHLOROTHIAZIDE [Suspect]
     Indication: HYPERTENSION
     Dosage: 1DF: 1 TAB, 300MG + 12.5MG COATED TABS,LONG TIME AGO
     Route: 048
  2. CALCIUM PHOSPHATE [Concomitant]
     Indication: OSTEOPOROSIS
     Dosage: 1 DF: 1 TAB,OSTEONUTRI,ABOUT 1 YEAR AND 3 MONTHS AGO
     Route: 048
     Dates: start: 20110101
  3. ATENOLOL [Concomitant]
     Indication: HYPERTENSION
     Dosage: 1DF: 1 TAB,LONG TIME AGO
     Route: 048

REACTIONS (4)
  - FEMUR FRACTURE [None]
  - LIMB ASYMMETRY [None]
  - FALL [None]
  - ANAEMIA [None]
